FAERS Safety Report 9839724 (Version 1)
Quarter: 2014Q1

REPORT INFORMATION
  Report Type: Report from Study
  Country: US (occurrence: US)
  Receive Date: 20140124
  Receipt Date: 20140124
  Transmission Date: 20141002
  Serious: Yes (Other)
  Sender: FDA-Public Use
  Company Number: US-ROCHE-1338753

PATIENT
  Sex: 0

DRUGS (3)
  1. BEVACIZUMAB [Suspect]
     Indication: NEOPLASM MALIGNANT
     Dosage: ON DAY 1 AND DAY 15 EVERY 28 DAYS CYCLE
     Route: 042
  2. VALPROIC ACID [Suspect]
     Indication: NEOPLASM MALIGNANT
     Dosage: DAY 1 TO DAY 28
     Route: 048
  3. VALPROIC ACID [Suspect]
     Dosage: DAY 1 TO DAY 28
     Route: 048

REACTIONS (1)
  - Mental status changes [Unknown]
